FAERS Safety Report 8592949-3 (Version None)
Quarter: 2012Q3

REPORT INFORMATION
  Report Type: 
  Country: None (occurrence: None)
  Receive Date: 20120814
  Receipt Date: 19881028
  Transmission Date: 20120928
  Serious: Yes (Death, Hospitalization, Other)
  Sender: FDA-Public Use
  Company Number: US-ROCHE-1099909

PATIENT
  Age: 62 Year
  Sex: Female

DRUGS (1)
  1. ACTIVASE [Suspect]
     Indication: ACUTE MYOCARDIAL INFARCTION
     Dosage: TWO VIALS OF 50 MG

REACTIONS (3)
  - DEATH [None]
  - VENTRICULAR TACHYCARDIA [None]
  - VOMITING [None]
